FAERS Safety Report 14472356 (Version 1)
Quarter: 2018Q1

REPORT INFORMATION
  Report Type: Spontaneous
  Country: GB (occurrence: GB)
  Receive Date: 20180131
  Receipt Date: 20180131
  Transmission Date: 20180509
  Serious: Yes (Other)
  Sender: FDA-Public Use
  Company Number: GB-MYLANLABS-2018M1005881

PATIENT
  Sex: Male

DRUGS (2)
  1. TRAZODONE [Suspect]
     Active Substance: TRAZODONE HYDROCHLORIDE
     Indication: SLEEP DISORDER
     Dosage: UNK
  2. ZOPICLONE [Suspect]
     Active Substance: ZOPICLONE
     Indication: SLEEP DISORDER
     Dosage: UNK

REACTIONS (2)
  - Amnesia [Unknown]
  - Somnolence [Unknown]
